FAERS Safety Report 25601137 (Version 1)
Quarter: 2025Q3

REPORT INFORMATION
  Report Type: Spontaneous
  Country: EU (occurrence: EU)
  Receive Date: 20250724
  Receipt Date: 20250724
  Transmission Date: 20251020
  Serious: Yes (Other)
  Sender: RANBAXY
  Company Number: EU-SUN PHARMACEUTICAL INDUSTRIES LTD-2025RR-517751

PATIENT
  Age: 51 Year
  Sex: Male
  Weight: 85 kg

DRUGS (5)
  1. GEMCITABINE [Suspect]
     Active Substance: GEMCITABINE
     Indication: Adenocarcinoma pancreas
     Route: 065
     Dates: start: 20250219, end: 20250219
  2. CISPLATIN [Suspect]
     Active Substance: CISPLATIN
     Indication: Adenocarcinoma pancreas
     Route: 065
     Dates: start: 20250219, end: 20250219
  3. ABRAXANE [Suspect]
     Active Substance: PACLITAXEL
     Indication: Adenocarcinoma pancreas
     Route: 065
     Dates: start: 20250219, end: 20250219
  4. CAPECITABINE [Suspect]
     Active Substance: CAPECITABINE
     Indication: Adenocarcinoma pancreas
     Route: 048
     Dates: start: 20250122, end: 20250218
  5. AKYNZEO [Concomitant]
     Indication: Product used for unknown indication
     Route: 065

REACTIONS (4)
  - Azotaemia [Recovering/Resolving]
  - Diarrhoea [Recovered/Resolved]
  - Dysgeusia [Recovering/Resolving]
  - Off label use [Recovering/Resolving]

NARRATIVE: CASE EVENT DATE: 20250219
